FAERS Safety Report 13297618 (Version 13)
Quarter: 2021Q1

REPORT INFORMATION
  Report Type: Spontaneous
  Country: US (occurrence: US)
  Receive Date: 20170306
  Receipt Date: 20210309
  Transmission Date: 20210419
  Serious: Yes (Hospitalization, Other)
  Sender: FDA-Public Use
  Company Number: US-PFIZER INC-2017090040

PATIENT
  Age: 52 Year
  Sex: Female
  Weight: 108 kg

DRUGS (32)
  1. SYNTHROID [Concomitant]
     Active Substance: LEVOTHYROXINE SODIUM
     Dosage: 175 UG, 1X/DAY
     Route: 048
  2. LYRICA [Suspect]
     Active Substance: PREGABALIN
     Dosage: 100 MG, 2X/DAY (2 CAPSULES BID)
  3. LYRICA [Suspect]
     Active Substance: PREGABALIN
     Dosage: 150 MG, 3X/DAY (TAKE 1 CAPS (150 MG TOTAL) BY MOUTH THREE (3) TIMES A DAY BEFORE MEALS FOR 14 DAYS)
     Route: 048
  4. HUMULIN NOS [Concomitant]
     Active Substance: INSULIN HUMAN
     Dosage: 0.45 ML, 1X/DAY, (0.45 ML, 1X/DAY, (100 UNIT/ML (70?30), 0.45 ML (45 UNITS TOTAL), PRIOR TO DINNER)
     Route: 058
  5. SYNTHROID [Concomitant]
     Active Substance: LEVOTHYROXINE SODIUM
     Dosage: 175 UG, UNK
  6. FISH OIL W/OMEGA?3 FATTY ACIDS [Concomitant]
     Active Substance: FISH OIL\OMEGA-3 FATTY ACIDS
     Dosage: 2 G, DAILY
     Route: 048
  7. PRAVASTATIN. [Concomitant]
     Active Substance: PRAVASTATIN
     Dosage: UNK
  8. ASA [Concomitant]
     Active Substance: ASPIRIN
     Dosage: UNK
  9. LYRICA [Suspect]
     Active Substance: PREGABALIN
     Dosage: 150 MG, 2X/DAY
     Route: 048
  10. NOVOLIN NOS [Concomitant]
     Active Substance: INSULIN HUMAN
     Dosage: 0.45 UNK, UNK, (0.45 ML, 1X/DAY, (100 UNIT/ML (70?30), 0.45 ML (45 UNITS TOTAL), PRIOR TO DINNER)
     Route: 058
  11. THERAGRAN [Concomitant]
     Active Substance: VITAMINS
     Dosage: 1 DF, UNK
     Route: 048
  12. GLUCOPHAGE [Concomitant]
     Active Substance: METFORMIN HYDROCHLORIDE
     Dosage: 1000 MG, 2X/DAY
     Route: 048
  13. LYRICA [Suspect]
     Active Substance: PREGABALIN
     Dosage: 250 MG, DAILY (2 TAB QAM, 3 TABS QPM)
     Dates: start: 20180105
  14. VITAMIN D3 [Concomitant]
     Active Substance: CHOLECALCIFEROL
     Dosage: 2000 IU, DAILY
     Route: 048
  15. BENADRYL [Concomitant]
     Active Substance: DIPHENHYDRAMINE HYDROCHLORIDE
     Indication: SLEEP DISORDER
     Dosage: 50 MG, AS NEEDED, (TAKE 50 MG BY MOUTH NIGHTLY)
     Route: 048
  16. LEVOTHROID [Concomitant]
     Active Substance: LEVOTHYROXINE SODIUM
     Dosage: 175 UG, 1X/DAY
     Route: 048
  17. PRAVACHOL [Concomitant]
     Active Substance: PRAVASTATIN SODIUM
     Dosage: 10 MG, DAILY
     Route: 048
  18. ASPIRIN. [Concomitant]
     Active Substance: ASPIRIN
     Dosage: 81 MG, DAILY
  19. COLCHICINE. [Concomitant]
     Active Substance: COLCHICINE
     Dosage: 1.2 MG, AS NEEDED, (TAKE 1 TABLET (0.6 MG TOTAL) BY MOUTH TWO (2) TIMES A DAY, FOR UP TO 5)
     Route: 048
  20. LOPID [Concomitant]
     Active Substance: GEMFIBROZIL
     Dosage: 600 MG, 2X/DAY
     Route: 048
  21. NOVOLIN NOS [Concomitant]
     Active Substance: INSULIN HUMAN
     Dosage: 0.65 ML, 1X/DAY, (100 UNIT/ML (70?30), 0.65 ML (65 UNITS TOTAL), BEFORE BREAKFAST)
     Route: 058
  22. LEVOTHROID [Concomitant]
     Active Substance: LEVOTHYROXINE SODIUM
     Dosage: 175 MG, UNK
  23. GEMFIBROZIL. [Concomitant]
     Active Substance: GEMFIBROZIL
     Dosage: UNK
  24. METFORMIN [Concomitant]
     Active Substance: METFORMIN HYDROCHLORIDE
     Dosage: UNK
  25. NPH [ISOPHANE INSULIN] [Concomitant]
     Active Substance: INSULIN NOS
     Indication: TYPE 2 DIABETES MELLITUS
     Dosage: 20 IU, 2X/DAY (MORNING AND EVENING)
  26. SEROQUEL [Concomitant]
     Active Substance: QUETIAPINE FUMARATE
     Dosage: 600 MG, 1X/DAY
     Route: 048
  27. QUETIAPINE. [Concomitant]
     Active Substance: QUETIAPINE
     Dosage: UNK
  28. INSULIN [Concomitant]
     Active Substance: INSULIN NOS
     Dosage: UNK
  29. LYRICA [Suspect]
     Active Substance: PREGABALIN
     Indication: DIABETIC NEUROPATHY
     Dosage: 50 MG, 2X/DAY (1 CAPSULE BID X 1 WEEK)
     Dates: start: 20170224
  30. LYRICA [Suspect]
     Active Substance: PREGABALIN
     Dosage: 150 MG, 2X/DAY (3 IN THE MORNING 3 IN THE EVENING)
     Dates: start: 201801
  31. HUMULIN NOS [Concomitant]
     Active Substance: INSULIN HUMAN
     Dosage: 0.65 ML, 1X/DAY, (100 UNIT/ML (70?30), 0.65 ML (65 UNITS TOTAL), BEFORE BREAKFAST)
     Route: 058
  32. LITHIUM. [Concomitant]
     Active Substance: LITHIUM
     Dosage: 900 MG, 1X/DAY
     Route: 048

REACTIONS (7)
  - Breakthrough pain [Unknown]
  - Feeling abnormal [Unknown]
  - Pain in extremity [Unknown]
  - Renal failure [Unknown]
  - Mental status changes [Unknown]
  - Intentional product misuse [Unknown]
  - Product dose omission issue [Unknown]

NARRATIVE: CASE EVENT DATE: 20200526
